FAERS Safety Report 5338028-X (Version None)
Quarter: 2007Q2

REPORT INFORMATION
  Report Type: 
  Country: None (occurrence: None)
  Receive Date: 20070530
  Receipt Date: 20070518
  Transmission Date: 20071010
  Serious: Yes (Hospitalization, Other)
  Sender: FDA-Public Use
  Company Number: PHFR2003GB02789

PATIENT
  Age: 37 Year
  Sex: Male

DRUGS (2)
  1. CLOZARIL [Suspect]
     Indication: SCHIZOPHRENIA
     Dosage: 200 MG/DAY
     Route: 048
     Dates: start: 19920714
  2. CLOZARIL [Suspect]
     Dosage: 187.5MG/DAY
     Route: 048
     Dates: start: 20000127

REACTIONS (9)
  - DRUG TOXICITY [None]
  - ELECTROENCEPHALOGRAM ABNORMAL [None]
  - EYE ROLLING [None]
  - MYOCLONIC EPILEPSY [None]
  - PNEUMONIA [None]
  - PYREXIA [None]
  - SLEEP APNOEA SYNDROME [None]
  - TRACHEAL ATRESIA [None]
  - TRACHEAL DISORDER [None]
